FAERS Safety Report 7073848-5 (Version None)
Quarter: 2010Q4

REPORT INFORMATION
  Report Type: 
  Country: None (occurrence: None)
  Receive Date: 20101029
  Receipt Date: 20101004
  Transmission Date: 20110411
  Serious: No
  Sender: FDA-Public Use
  Company Number: A0877469A

PATIENT
  Age: 67 Year
  Sex: Female

DRUGS (4)
  1. ADVAIR DISKUS 100/50 [Suspect]
     Indication: CHRONIC OBSTRUCTIVE PULMONARY DISEASE
     Dosage: 1PUFF TWICE PER DAY
     Route: 055
     Dates: start: 20080101
  2. PROAIR HFA [Concomitant]
  3. DILTIAZEM [Concomitant]
  4. LISINOPRIL AND HYDROCHLOROTHIAZIDE [Concomitant]

REACTIONS (5)
  - COUGH [None]
  - DYSPHONIA [None]
  - FEELING ABNORMAL [None]
  - PRODUCT QUALITY ISSUE [None]
  - UPPER RESPIRATORY TRACT CONGESTION [None]
